FAERS Safety Report 12316354 (Version 1)
Quarter: 2016Q2

REPORT INFORMATION
  Report Type: Spontaneous
  Country: ES (occurrence: ES)
  Receive Date: 20160429
  Receipt Date: 20160429
  Transmission Date: 20160815
  Serious: Yes (Other)
  Sender: FDA-Public Use
  Company Number: ES-AMGEN-ESPSP2015121038

PATIENT
  Age: 73 Year
  Sex: Female

DRUGS (14)
  1. ACOVIL [Concomitant]
     Active Substance: PHENIRAMINE
     Indication: HYPERTENSION
     Dosage: 2.5 MG, 1X/DAY (1 TABLET EVERY 24 HOURS )
  2. EMCORETIC [Concomitant]
     Active Substance: BISOPROLOL FUMARATE\HYDROCHLOROTHIAZIDE
     Dosage: 10 MG, 1X/DAY (1 TABLET EVERY 24 HOURS)
  3. PRANDIN                            /00882701/ [Concomitant]
     Active Substance: DEFLAZACORT
     Indication: DIABETES MELLITUS
     Dosage: 0.5 MG, 1X/DAY (1 TABLET EVERY 24 HOURS)
  4. ALOPURINOL [Concomitant]
     Active Substance: ALLOPURINOL
     Indication: HYPERURICAEMIA
     Dosage: 100 MG, 1X/DAY (1 TABLET EVERY 24 HOURS)
  5. DEXACORT                           /00016001/ [Concomitant]
     Indication: RHEUMATOID ARTHRITIS
     Dosage: 6 MG, 1X/DAY (1 TABLET EVERY 24 HOURS)
  6. DOLQUINE [Concomitant]
     Active Substance: HYDROXYCHLOROQUINE SULFATE
     Indication: RHEUMATOID ARTHRITIS
     Dosage: 200 MG, 1X/DAY (1 TABLET EVERY 24 HOURS)
  7. DEXACORT                           /00016001/ [Concomitant]
     Indication: RHEUMATOID ARTHRITIS
     Dosage: 6 MG, 1X/DAY (1 TABLET EVERY 24 HOURS)
  8. PANTECTA [Concomitant]
     Active Substance: PANTOPRAZOLE SODIUM
     Dosage: 40 MG, 1X/DAY (1 TABLET EVERY 24 HOURS)
  9. ENBREL [Suspect]
     Active Substance: ETANERCEPT
     Indication: RHEUMATOID ARTHRITIS
     Dosage: 50 MG, WEEKLY (ON TUESDAYS)
     Route: 058
  10. PRANDIN                            /00882701/ [Concomitant]
     Active Substance: DEFLAZACORT
     Indication: DIABETES MELLITUS
     Dosage: 0.5 MG, 1X/DAY (1 TABLET EVERY 24 HOURS)
  11. ATORVASTATIN [Concomitant]
     Active Substance: ATORVASTATIN
     Dosage: 10 MG, 1X/DAY (ONE TABLET EVERY 24 HOURS)
  12. ENBREL [Suspect]
     Active Substance: ETANERCEPT
     Dosage: UNK UNK, QWK
     Route: 065
  13. TARDYFERON [Concomitant]
     Active Substance: FERROUS SULFATE\FOLIC ACID
     Indication: ANAEMIA
     Dosage: 80 MG, 1X/DAY (1 TABLET EVERY 24 HOURS)
  14. ATORVASTATIN [Concomitant]
     Active Substance: ATORVASTATIN
     Indication: HYPERCHOLESTEROLAEMIA
     Dosage: 10 MG, 1X/DAY

REACTIONS (3)
  - Peripheral swelling [Unknown]
  - Haematochezia [Unknown]
  - Injection site pain [Recovered/Resolved]

NARRATIVE: CASE EVENT DATE: 2015
